FAERS Safety Report 8514340-8 (Version None)
Quarter: 2012Q2

REPORT INFORMATION
  Report Type: 
  Country: None (occurrence: None)
  Receive Date: 20120406
  Receipt Date: 20120126
  Transmission Date: 20120825
  Serious: Yes (Hospitalization)
  Sender: FDA-Public Use
  Company Number: US-CYRP-2011-000082

PATIENT
  Sex: Female
  Weight: 132 kg

DRUGS (11)
  1. COREG [Concomitant]
  2. EFFEXOR [Concomitant]
  3. GLIMEPIRIDE [Concomitant]
  4. LISINOPRIL [Concomitant]
  5. LANTUS [Concomitant]
  6. NOVOLOG [Concomitant]
  7. BUMEX [Concomitant]
  8. CYPHER STENT [Concomitant]
  9. CLOPIDOGREL [Suspect]
     Indication: ANTIPLATELET THERAPY
     Dosage: 75 MG, ORAL
     Route: 048
     Dates: start: 20101208
  10. PLAVIX [Concomitant]
  11. NEURONTIN [Concomitant]

REACTIONS (1)
  - FALL [None]
